FAERS Safety Report 8874174 (Version 3)
Quarter: 2013Q1

REPORT INFORMATION
  Report Type: Spontaneous
  Country: US (occurrence: US)
  Receive Date: 20121031
  Receipt Date: 20130124
  Transmission Date: 20140127
  Serious: Yes (Hospitalization)
  Sender: FDA-Public Use
  Company Number: US-AMGEN-USASP2012068598

PATIENT
  Age: 8 Year
  Sex: Female
  Weight: 24.94 kg

DRUGS (3)
  1. ENBREL [Suspect]
     Indication: JUVENILE IDIOPATHIC ARTHRITIS
     Dosage: 25 MG, QWK
     Route: 058
     Dates: start: 20080414
  2. ENBREL [Suspect]
     Indication: PSORIATIC ARTHROPATHY
  3. NAPROXEN [Concomitant]
     Indication: PSORIATIC ARTHROPATHY
     Dosage: 7 ML, BID
     Route: 048

REACTIONS (6)
  - Arthritis [Not Recovered/Not Resolved]
  - Pain in jaw [Unknown]
  - Juvenile idiopathic arthritis [Not Recovered/Not Resolved]
  - Injection site pain [Recovered/Resolved]
  - Pharyngitis streptococcal [Recovered/Resolved]
  - Psoriasis [Unknown]
